FAERS Safety Report 7437927-2 (Version None)
Quarter: 2011Q2

REPORT INFORMATION
  Report Type: 
  Country: None (occurrence: None)
  Receive Date: 20110426
  Receipt Date: 20110415
  Transmission Date: 20111010
  Serious: Yes (Disabling)
  Sender: FDA-Public Use
  Company Number: FR-PFIZER INC-2011082814

PATIENT
  Age: 80 Year
  Sex: Female

DRUGS (6)
  1. XANAX [Suspect]
     Indication: ANXIETY
     Dosage: 0.5 MG, 1X/DAY
     Route: 048
     Dates: start: 20070101, end: 20101201
  2. SINEMET [Suspect]
     Indication: PARKINSON'S DISEASE
     Dosage: 250MG/25MG, SCORED TABLET, 1 PER DAY
     Route: 048
     Dates: start: 20070101, end: 20110201
  3. TRANDATE [Concomitant]
     Dosage: UNK
  4. MODOPAR [Suspect]
     Indication: PARKINSON'S DISEASE
     Dosage: 1325 MG, 1X/DAY
     Route: 048
     Dates: start: 20070101, end: 20110201
  5. KARDEGIC [Concomitant]
     Dosage: UNK
  6. STILNOX [Suspect]
     Indication: INSOMNIA
     Dosage: 10 MG, 1X/DAY
     Route: 048
     Dates: start: 20070101, end: 20101201

REACTIONS (3)
  - AGITATION [None]
  - ANXIETY [None]
  - CHOREOATHETOSIS [None]
